FAERS Safety Report 10066086 (Version 2)
Quarter: 2014Q2

REPORT INFORMATION
  Report Type: Spontaneous
  Country: US (occurrence: US)
  Receive Date: 20140408
  Receipt Date: 20140408
  Transmission Date: 20141212
  Serious: No
  Sender: FDA-Public Use
  Company Number: US-ASTELLAS-2014US001269

PATIENT
  Sex: Female

DRUGS (5)
  1. MYRBETRIQ [Suspect]
     Indication: POLLAKIURIA
     Dosage: 50 MG, UNKNOWN/D
     Route: 048
     Dates: start: 20131209
  2. MYRBETRIQ [Suspect]
     Indication: INCONTINENCE
     Dosage: 25 MG, UNKNOWN/D
     Route: 048
     Dates: start: 201311, end: 201312
  3. SYNTHROID [Concomitant]
     Indication: PRODUCT USED FOR UNKNOWN INDICATION
     Dosage: 150 MG, UNKNOWN/D
     Route: 065
  4. PROGESTERONE [Concomitant]
     Indication: MENOPAUSE
     Dosage: UNK
     Route: 065
  5. ESTRADIOL [Concomitant]
     Indication: MENOPAUSE
     Dosage: UNK
     Route: 065

REACTIONS (6)
  - Dehydration [Recovering/Resolving]
  - Weight decreased [Recovering/Resolving]
  - Pollakiuria [Recovering/Resolving]
  - Diabetes mellitus [Unknown]
  - Stress [Unknown]
  - Prehypertension [Unknown]
